FAERS Safety Report 23831827 (Version 1)
Quarter: 2024Q2

REPORT INFORMATION
  Report Type: Spontaneous
  Country: US (occurrence: None)
  Receive Date: 20240507
  Receipt Date: 20240507
  Transmission Date: 20240716
  Serious: Yes (Life-Threatening, Hospitalization, Other)
  Sender: FDA-Public Use
  Company Number: None

PATIENT
  Age: 80 Year
  Sex: Male
  Weight: 73 kg

DRUGS (1)
  1. MOMELOTINIB [Suspect]
     Active Substance: MOMELOTINIB
     Dates: start: 20231219, end: 20240209

REACTIONS (4)
  - Left ventricular failure [None]
  - Feeling abnormal [None]
  - Weight decreased [None]
  - Atrial fibrillation [None]

NARRATIVE: CASE EVENT DATE: 20240215
